FAERS Safety Report 16197246 (Version 1)
Quarter: 2019Q2

REPORT INFORMATION
  Report Type: Spontaneous
  Country: US (occurrence: US)
  Receive Date: 20190413
  Receipt Date: 20190413
  Transmission Date: 20190711
  Serious: Yes (Hospitalization, Disabling)
  Sender: FDA-Public Use
  Company Number: None

PATIENT
  Age: 49 Year
  Sex: Female
  Weight: 60.75 kg

DRUGS (6)
  1. CHONDROITIN [Concomitant]
     Active Substance: CHONDROITIN
  2. MONTELUKAST [Suspect]
     Active Substance: MONTELUKAST SODIUM
     Indication: ASTHMA
     Dosage: ?          QUANTITY:1 TABLET(S);?
     Route: 048
     Dates: start: 20190121, end: 20190408
  3. CALCIUM [Concomitant]
     Active Substance: CALCIUM
  4. MULTIVITAMIN [Concomitant]
     Active Substance: VITAMINS
  5. VITAMIN D [Concomitant]
     Active Substance: VITAMIN D NOS
  6. FLAXSEED [Concomitant]
     Active Substance: FLAX SEED

REACTIONS (16)
  - Insomnia [None]
  - Disturbance in attention [None]
  - Palpitations [None]
  - Pollakiuria [None]
  - Confusional state [None]
  - Ventricular extrasystoles [None]
  - Fatigue [None]
  - Night sweats [None]
  - Irritability [None]
  - Cyanosis [None]
  - Erythema [None]
  - Feeling of body temperature change [None]
  - Paraesthesia [None]
  - Blood glucose fluctuation [None]
  - Hunger [None]
  - Nausea [None]

NARRATIVE: CASE EVENT DATE: 20190310
